FAERS Safety Report 16923286 (Version 1)
Quarter: 2019Q4

REPORT INFORMATION
  Report Type: Spontaneous
  Country: US (occurrence: US)
  Receive Date: 20191016
  Receipt Date: 20191016
  Transmission Date: 20200122
  Serious: Yes (Hospitalization)
  Sender: FDA-Public Use
  Company Number: US-ROCHE-2440385

PATIENT
  Age: 80 Year
  Sex: Female

DRUGS (11)
  1. GUAIFENESIN. [Concomitant]
     Active Substance: GUAIFENESIN
  2. LEVOTHYROXINE. [Concomitant]
     Active Substance: LEVOTHYROXINE
     Route: 065
  3. METFORMIN [Concomitant]
     Active Substance: METFORMIN HYDROCHLORIDE
     Route: 065
  4. VITAMIN C [Concomitant]
     Active Substance: ASCORBIC ACID
  5. CALCITRATE [Concomitant]
     Active Substance: CALCIUM CITRATE
  6. ESBRIET [Suspect]
     Active Substance: PIRFENIDONE
     Indication: IDIOPATHIC PULMONARY FIBROSIS
     Route: 048
     Dates: start: 20190822
  7. TRAMADOL HCL [Concomitant]
     Active Substance: TRAMADOL HYDROCHLORIDE
  8. ATORVASTATIN [Concomitant]
     Active Substance: ATORVASTATIN
  9. IRON [Concomitant]
     Active Substance: IRON
  10. ALENDRONATE [Concomitant]
     Active Substance: ALENDRONATE SODIUM
  11. NORTRIPTYLIN [Concomitant]
     Active Substance: NORTRIPTYLINE

REACTIONS (2)
  - Fluid retention [Unknown]
  - Blood sodium decreased [Unknown]

NARRATIVE: CASE EVENT DATE: 201909
